FAERS Safety Report 5329738-9 (Version None)
Quarter: 2007Q2

REPORT INFORMATION
  Report Type: 
  Country: None (occurrence: None)
  Receive Date: 20070521
  Receipt Date: 20070509
  Transmission Date: 20071010
  Serious: Yes (Other)
  Sender: FDA-Public Use
  Company Number: FI-AMGEN-US225331

PATIENT
  Sex: Female

DRUGS (3)
  1. ENBREL [Suspect]
     Indication: RHEUMATOID ARTHRITIS
     Route: 058
     Dates: start: 20040501, end: 20070301
  2. FOSAMAX [Concomitant]
     Dosage: NOT SPECIFIED
  3. METHOTREXATE [Concomitant]
     Dosage: 7,5 MG PER WEEK
     Route: 048

REACTIONS (1)
  - ERYTHEMA INDURATUM [None]
